FAERS Safety Report 4833483-3 (Version None)
Quarter: 2005Q4

REPORT INFORMATION
  Report Type: 
  Country: None (occurrence: None)
  Receive Date: 20051121
  Receipt Date: 20050901
  Transmission Date: 20060501
  Serious: Yes (Death, Hospitalization)
  Sender: FDA-Public Use
  Company Number: US-MERCK-0509USA00452

PATIENT
  Age: 49 Year
  Sex: Male
  Weight: 130 kg

DRUGS (37)
  1. ALBUTEROL [Concomitant]
     Indication: DYSPNOEA
     Route: 065
  2. ALLEGRA [Concomitant]
     Indication: HYPERSENSITIVITY
     Route: 065
  3. XANAX [Concomitant]
     Indication: ANXIETY
     Route: 065
  4. ALTACE [Concomitant]
     Indication: HYPERTENSION
     Route: 065
  5. AMBIEN [Concomitant]
     Indication: INSOMNIA
     Route: 065
  6. AUGMENTIN [Concomitant]
     Indication: INFECTION
     Route: 065
  7. AVELOX [Concomitant]
     Indication: BACTERIAL INFECTION
     Route: 065
  8. CARISOPRODOL [Concomitant]
     Indication: MUSCLE RELAXANT THERAPY
     Route: 065
  9. CLONIDINE [Concomitant]
     Indication: DEPRESSION
     Route: 065
  10. CLONIDINE [Concomitant]
     Indication: MIGRAINE
     Route: 065
  11. LORATADINE [Concomitant]
     Indication: HYPERSENSITIVITY
     Route: 065
  12. LASIX [Concomitant]
     Indication: HYPERTENSION
     Route: 065
  13. LASIX [Concomitant]
     Indication: OEDEMA
     Route: 065
  14. HYDROCHLOROTHIAZIDE [Concomitant]
     Indication: HYPERTENSION
     Route: 065
  15. VIOXX [Suspect]
     Indication: ARTHRITIS
     Route: 048
     Dates: start: 20030513, end: 20030701
  16. VIOXX [Suspect]
     Route: 048
     Dates: start: 20040203, end: 20040820
  17. ACIPHEX [Concomitant]
     Indication: GASTROOESOPHAGEAL REFLUX DISEASE
     Route: 065
  18. HYDROCODONE BITARTRATE + ACETAMINOPHEN [Concomitant]
     Indication: ANALGESIC EFFECT
     Route: 065
  19. HYZAAR [Concomitant]
     Indication: HYPERTENSION
     Route: 065
  20. HYZAAR [Concomitant]
     Indication: OEDEMA
     Route: 065
  21. KLOR-CON [Concomitant]
     Indication: MINERAL SUPPLEMENTATION
     Route: 065
  22. LABETALOL HYDROCHLORIDE [Concomitant]
     Indication: HYPERTENSION
     Route: 065
  23. LEVAQUIN [Concomitant]
     Indication: INFECTION
     Route: 065
  24. MAGNESIUM OXIDE [Concomitant]
     Indication: MINERAL SUPPLEMENTATION
     Route: 065
  25. MONOPRIL [Concomitant]
     Indication: CARDIAC FAILURE
     Route: 065
  26. MONOPRIL [Concomitant]
     Indication: HYPERTENSION
     Route: 065
  27. ACETAMINOPHEN AND OXYCODONE HYDROCHLORIDE [Concomitant]
     Indication: ANALGESIC EFFECT
     Route: 065
  28. PLAVIX [Concomitant]
     Indication: ANTICOAGULANT THERAPY
     Route: 065
  29. POTASSIUM (UNSPECIFIED) [Concomitant]
     Indication: ROUTINE HEALTH MAINTENANCE
     Route: 065
  30. PRAVACHOL [Concomitant]
     Indication: BLOOD CHOLESTEROL INCREASED
     Route: 065
  31. PROMETHAZINE [Concomitant]
     Indication: HYPERSENSITIVITY
     Route: 065
  32. PROTONIX [Concomitant]
     Indication: GASTROOESOPHAGEAL REFLUX DISEASE
     Route: 065
  33. TRIAMCINOLONE [Concomitant]
     Indication: ASTHMA
     Route: 065
  34. VERAPAMIL [Concomitant]
     Indication: ANGINA PECTORIS
     Route: 065
  35. VERAPAMIL [Concomitant]
     Indication: HYPERTENSION
     Route: 065
  36. ZETIA [Concomitant]
     Indication: BLOOD CHOLESTEROL INCREASED
     Route: 065
  37. ASPIRIN [Concomitant]
     Route: 065

REACTIONS (20)
  - ACQUIRED OESOPHAGEAL WEB [None]
  - CARDIAC ARREST [None]
  - CEREBROVASCULAR ACCIDENT PROPHYLAXIS [None]
  - CORONARY ARTERY DISEASE [None]
  - DIABETES MELLITUS NON-INSULIN-DEPENDENT [None]
  - DYSPHAGIA [None]
  - EROSIVE OESOPHAGITIS [None]
  - HAEMATOMA [None]
  - HIATUS HERNIA [None]
  - HYPERTENSIVE EMERGENCY [None]
  - HYPERTRIGLYCERIDAEMIA [None]
  - MIGRAINE [None]
  - PNEUMONIA ASPIRATION [None]
  - PULMONARY OEDEMA [None]
  - RENAL ARTERY STENOSIS [None]
  - SINUS TACHYCARDIA [None]
  - SUDDEN CARDIAC DEATH [None]
  - URINARY RETENTION [None]
  - VASCULAR PSEUDOANEURYSM [None]
  - VENTRICULAR FIBRILLATION [None]
